FAERS Safety Report 7663094 (Version 3)
Quarter: 2014Q2

REPORT INFORMATION
  Report Type: Spontaneous
  Country: US (occurrence: US)
  Receive Date: 20101110
  Receipt Date: 20140506
  Transmission Date: 20141212
  Serious: Yes (Other)
  Sender: FDA-Public Use
  Company Number: US-BAYER-201040122NA

PATIENT
  Age: 15 Year
  Sex: Female
  Weight: 50.79 kg

DRUGS (9)
  1. YAZ [Suspect]
     Route: 048
     Dates: start: 200811, end: 20091015
  2. ADVAIR [Concomitant]
     Indication: ASTHMA
     Dosage: UNK
     Dates: start: 200609
  3. SINGULAIR [Concomitant]
     Indication: ASTHMA
     Dosage: UNK
     Dates: start: 200609
  4. XOPENEX [Concomitant]
     Indication: ASTHMA
     Dosage: UNK
     Dates: start: 200609
  5. NASONEX [Concomitant]
     Indication: ASTHMA
     Dosage: UNK
     Dates: start: 200609
  6. ROBINUL [Concomitant]
  7. PREVACID [Concomitant]
  8. IBUPROFEN [Concomitant]
     Dosage: UNK
     Dates: start: 200506
  9. GARDASIL [Concomitant]

REACTIONS (7)
  - Gallbladder disorder [None]
  - Cholecystitis chronic [None]
  - Biliary dyskinesia [None]
  - Gastric disorder [None]
  - Vomiting [None]
  - Procedural pain [None]
  - Weight decreased [None]
